FAERS Safety Report 18975238 (Version 1)
Quarter: 2021Q1

REPORT INFORMATION
  Report Type: Other
  Country: JP (occurrence: JP)
  Receive Date: 20210305
  Receipt Date: 20210305
  Transmission Date: 20210420
  Serious: Yes (Other)
  Sender: FDA-Public Use
  Company Number: JP-BRECKENRIDGE PHARMACEUTICAL, INC.-2107628

PATIENT
  Age: 27 Year
  Sex: Female

DRUGS (1)
  1. EPINASTINE HYDROCHLORIDE. [Suspect]
     Active Substance: EPINASTINE HYDROCHLORIDE

REACTIONS (3)
  - Self-medication [None]
  - Alopecia totalis [None]
  - Alopecia areata [None]
